FAERS Safety Report 18326125 (Version 2)
Quarter: 2020Q4

REPORT INFORMATION
  Report Type: Spontaneous
  Country: CA (occurrence: CA)
  Receive Date: 20200929
  Receipt Date: 20201001
  Transmission Date: 20210113
  Serious: Yes (Death)
  Sender: FDA-Public Use
  Company Number: CA-JNJFOC-20200935831

PATIENT
  Age: 67 Year
  Sex: Male

DRUGS (11)
  1. REMICADE [Suspect]
     Active Substance: INFLIXIMAB
     Indication: MYOCARDITIS
  2. REMICADE [Suspect]
     Active Substance: INFLIXIMAB
     Indication: MYOSITIS
     Route: 042
  3. REMICADE [Suspect]
     Active Substance: INFLIXIMAB
     Indication: ATRIOVENTRICULAR BLOCK
  4. METHYLPREDNISOLONE. [Suspect]
     Active Substance: METHYLPREDNISOLONE
     Indication: MYOSITIS
     Route: 042
  5. IPILIMUMAB W/NIVOLUMAB [Concomitant]
     Indication: METASTATIC MALIGNANT MELANOMA
     Route: 065
  6. METHYLPREDNISOLONE. [Suspect]
     Active Substance: METHYLPREDNISOLONE
     Indication: MYOCARDITIS
     Route: 042
  7. IMMUNE GLOBULIN (IMMUNOGLOBULINS NOS) [Suspect]
     Active Substance: IMMUNE GLOBULIN NOS
     Indication: MYOSITIS
     Route: 042
  8. IMMUNE GLOBULIN (IMMUNOGLOBULINS NOS) [Suspect]
     Active Substance: IMMUNE GLOBULIN NOS
     Indication: ATRIOVENTRICULAR BLOCK
  9. IMMUNE GLOBULIN (IMMUNOGLOBULINS NOS) [Suspect]
     Active Substance: IMMUNE GLOBULIN NOS
     Indication: MYOCARDITIS
  10. IMMUNOGLOBULIN G HUMAN [Suspect]
     Active Substance: HUMAN IMMUNOGLOBULIN G
     Indication: RESPIRATORY FAILURE
     Route: 065
  11. METHYLPREDNISOLONE. [Suspect]
     Active Substance: METHYLPREDNISOLONE
     Indication: ATRIOVENTRICULAR BLOCK

REACTIONS (6)
  - Multiple organ dysfunction syndrome [Fatal]
  - Off label use [Fatal]
  - Rhabdomyolysis [Fatal]
  - Myocarditis [Fatal]
  - Drug ineffective for unapproved indication [Fatal]
  - Product use in unapproved indication [Fatal]
